FAERS Safety Report 5994832-6 (Version None)
Quarter: 2008Q4

REPORT INFORMATION
  Report Type: 
  Country: None (occurrence: None)
  Receive Date: 20081212
  Receipt Date: 20080915
  Transmission Date: 20090506
  Serious: No
  Sender: FDA-Public Use
  Company Number: US-ABBOTT-08P-163-0476505-00

PATIENT
  Sex: Male
  Weight: 76.272 kg

DRUGS (10)
  1. HUMIRA [Suspect]
     Indication: COLITIS ULCERATIVE
     Dosage: 2 INJECTIONS
     Route: 058
     Dates: start: 20080908, end: 20080908
  2. HUMIRA [Suspect]
     Dosage: 2 INJECTIONS
     Route: 058
     Dates: start: 20080909, end: 20080909
  3. HUMIRA [Suspect]
  4. MESALAMINE [Concomitant]
     Indication: COLITIS ULCERATIVE
     Route: 048
  5. MONTELUKAST SODIUM [Concomitant]
     Indication: HYPERSENSITIVITY
     Route: 048
  6. LANSOPRAZOLE [Concomitant]
     Indication: GASTROOESOPHAGEAL REFLUX DISEASE
     Route: 048
  7. PREDNISONE TAB [Concomitant]
     Indication: COLITIS ULCERATIVE
     Route: 048
  8. ISONIAZID [Concomitant]
     Indication: TUBERCULOSIS
     Route: 048
  9. BECLOMETHASONE DIPROPIONATE [Concomitant]
     Indication: HYPERSENSITIVITY
     Dosage: EACH NOSTRIL
     Route: 045
  10. ALBUTEROL SULFATE [Concomitant]
     Indication: ASTHMA
     Route: 055

REACTIONS (12)
  - ANOREXIA [None]
  - CONFUSIONAL STATE [None]
  - DISORIENTATION [None]
  - DIZZINESS [None]
  - DYSKINESIA [None]
  - FATIGUE [None]
  - FEELING ABNORMAL [None]
  - HEADACHE [None]
  - INSOMNIA [None]
  - MUSCLE TWITCHING [None]
  - NAUSEA [None]
  - TRISMUS [None]
